FAERS Safety Report 9129757 (Version 1)
Quarter: 2013Q1

REPORT INFORMATION
  Report Type: Spontaneous
  Country: FR (occurrence: FR)
  Receive Date: 20130228
  Receipt Date: 20130228
  Transmission Date: 20140127
  Serious: Yes (Hospitalization)
  Sender: FDA-Public Use
  Company Number: FR-ASTRAZENECA-2013SE11628

PATIENT
  Age: 33724 Day
  Sex: Male

DRUGS (9)
  1. BRILIQUE [Suspect]
     Route: 048
     Dates: start: 20120825, end: 20130204
  2. ASPEGIC NOURRISSONS [Suspect]
     Route: 048
     Dates: end: 20130204
  3. ASPEGIC NOURRISSONS [Suspect]
     Route: 048
     Dates: start: 201302, end: 20130209
  4. ASPEGIC NOURRISSONS [Suspect]
     Route: 048
     Dates: start: 20130209
  5. AMLODIPINE [Concomitant]
  6. EPINITRIL [Concomitant]
  7. GAVISCON [Concomitant]
  8. NEBIVOLOL [Concomitant]
  9. PERINDOPRIL [Concomitant]

REACTIONS (4)
  - Condition aggravated [Recovered/Resolved]
  - Haematemesis [Recovered/Resolved]
  - Melaena [Recovered/Resolved]
  - Bronchitis [Unknown]
